FAERS Safety Report 20617574 (Version 1)
Quarter: 2022Q1

REPORT INFORMATION
  Report Type: Spontaneous
  Country: US (occurrence: US)
  Receive Date: 20220321
  Receipt Date: 20220321
  Transmission Date: 20220423
  Serious: Yes (Death)
  Sender: FDA-Public Use
  Company Number: US-REDHILL BIOPHARMA-2022RDH00043

PATIENT
  Age: 63 Year
  Sex: Female

DRUGS (18)
  1. MOVANTIK [Suspect]
     Active Substance: NALOXEGOL OXALATE
     Indication: Constipation
     Dosage: 25 MG, 1X/DAY EVERY MORNING
     Route: 048
     Dates: start: 202202, end: 20220303
  2. WARFARIN [Suspect]
     Active Substance: WARFARIN
     Dosage: UNK
     Dates: start: 202203, end: 20220303
  3. DULOXETINE [Concomitant]
     Active Substance: DULOXETINE
  4. CARBAMAZEPINE [Concomitant]
     Active Substance: CARBAMAZEPINE
  5. FLUOXETINE [Concomitant]
     Active Substance: FLUOXETINE HYDROCHLORIDE
  6. POTASSIUM [Concomitant]
     Active Substance: POTASSIUM
  7. COLESTIPOL [Concomitant]
     Active Substance: COLESTIPOL
  8. DILTIAZEM [Concomitant]
     Active Substance: DILTIAZEM
  9. METOPROLOL [Concomitant]
     Active Substance: METOPROLOL
  10. TORSEMDIE [Concomitant]
  11. BUMETANIDE [Concomitant]
     Active Substance: BUMETANIDE
  12. DIGOXIN [Concomitant]
     Active Substance: DIGOXIN
  13. BUPROPION [Concomitant]
     Active Substance: BUPROPION
  14. LEVOTHYROXINE [Concomitant]
     Active Substance: LEVOTHYROXINE
  15. OMEPRAZOLE [Concomitant]
     Active Substance: OMEPRAZOLE
  16. CALCIUM [Concomitant]
     Active Substance: CALCIUM
  17. EZETIMIBE [Concomitant]
     Active Substance: EZETIMIBE
  18. LYSINE [Concomitant]
     Active Substance: LYSINE

REACTIONS (4)
  - Circulatory collapse [Fatal]
  - Gait disturbance [Fatal]
  - Tremor [Fatal]
  - Hyperhidrosis [Fatal]

NARRATIVE: CASE EVENT DATE: 20220303
